FAERS Safety Report 12293916 (Version 1)
Quarter: 2016Q2

REPORT INFORMATION
  Report Type: Spontaneous
  Country: CA (occurrence: CA)
  Receive Date: 20160422
  Receipt Date: 20160422
  Transmission Date: 20160815
  Serious: Yes (Hospitalization)
  Sender: FDA-Public Use
  Company Number: CA-ROCHE-1745719

PATIENT
  Sex: Female

DRUGS (18)
  1. XOLAIR [Suspect]
     Active Substance: OMALIZUMAB
     Route: 058
     Dates: start: 20160414
  2. GLICLAZIDE [Concomitant]
     Active Substance: GLICLAZIDE
  3. DOMPERIDONE [Concomitant]
     Active Substance: DOMPERIDONE
  4. ALVESCO [Concomitant]
     Active Substance: CICLESONIDE
  5. XOLAIR [Suspect]
     Active Substance: OMALIZUMAB
     Indication: ASTHMA
     Route: 058
     Dates: start: 20151202
  6. INVOKANA [Concomitant]
     Active Substance: CANAGLIFLOZIN
  7. SALBUTAMOL TEVA [Concomitant]
     Active Substance: ALBUTEROL
  8. METFORMIN [Suspect]
     Active Substance: METFORMIN HYDROCHLORIDE
     Indication: PRODUCT USED FOR UNKNOWN INDICATION
     Route: 048
  9. ZENHALE [Concomitant]
     Active Substance: FORMOTEROL FUMARATE\MOMETASONE FUROATE
  10. EURO-FER [Concomitant]
  11. PANTOPRAZOLE [Suspect]
     Active Substance: PANTOPRAZOLE SODIUM
     Indication: GASTROOESOPHAGEAL REFLUX DISEASE
     Route: 048
  12. TRADJENTA [Concomitant]
     Active Substance: LINAGLIPTIN
  13. OLMETEC [Concomitant]
     Active Substance: OLMESARTAN MEDOXOMIL
  14. TUDORZA PRESSAIR [Concomitant]
     Active Substance: ACLIDINIUM BROMIDE
  15. NASONEX [Concomitant]
     Active Substance: MOMETASONE FUROATE
  16. TEVA ROSUVASTATIN [Concomitant]
  17. VITAMIN B12 [Concomitant]
     Active Substance: CYANOCOBALAMIN
  18. CETIRIZINE [Concomitant]
     Active Substance: CETIRIZINE HYDROCHLORIDE

REACTIONS (1)
  - Pneumonia [Unknown]
